FAERS Safety Report 8006306-1 (Version None)
Quarter: 2011Q4

REPORT INFORMATION
  Report Type: 
  Country: None (occurrence: None)
  Receive Date: 20111226
  Receipt Date: 20111214
  Transmission Date: 20120403
  Serious: Yes (Other)
  Sender: FDA-Public Use
  Company Number: PHHY2011BR109238

PATIENT
  Sex: Female

DRUGS (4)
  1. HYDROCHLOROTHIAZIDE [Concomitant]
     Dosage: 25 MG, QD
  2. FORMOTEROL FUMARATE [Suspect]
     Dosage: 12/400 MCG
  3. TRILEPTAL [Suspect]
     Dosage: 300 MG, BID
  4. RASILEZ [Suspect]
     Dosage: 300 MG, BID

REACTIONS (1)
  - DIABETES MELLITUS [None]
